FAERS Safety Report 9245942 (Version 1)
Quarter: 2013Q2

REPORT INFORMATION
  Report Type: Report from Study
  Country: US (occurrence: US)
  Receive Date: 20130422
  Receipt Date: 20130422
  Transmission Date: 20140414
  Serious: Yes (Other)
  Sender: FDA-Public Use
  Company Number: PHEH2013US006021

PATIENT
  Age: 49 Year
  Sex: Female
  Weight: 99.8 kg

DRUGS (7)
  1. GILENYA [Suspect]
     Indication: MULTIPLE SCLEROSIS
     Dosage: 0.5 MG, QD
     Route: 048
     Dates: start: 20121018, end: 20130305
  2. AMLODIPINE [Concomitant]
     Indication: HYPERTENSION
     Dosage: 10 MG, DAILY
     Route: 048
  3. CITALOPRAM [Concomitant]
     Indication: DEPRESSION
     Dosage: 10 MG, DAILY
     Route: 048
  4. DALFAMPRIDINE [Concomitant]
     Indication: MULTIPLE SCLEROSIS
     Dosage: 10 MG, BID
     Route: 048
     Dates: start: 2012
  5. LOSARTAN + HIDROCLOROTIAZIDA [Concomitant]
     Indication: HYPERTENSION
     Dosage: 50 MG - 125  MG, DAILY
     Route: 048
  6. VALSARTAN [Concomitant]
     Indication: HYPERTENSION
     Dosage: 160 MG, DAILY
     Route: 048
  7. IBUPROFEN [Concomitant]
     Indication: PAIN
     Dosage: UNK UKN, PRN

REACTIONS (4)
  - Agranulocytosis [Unknown]
  - Anaemia [Unknown]
  - Leukopenia [Recovering/Resolving]
  - Neutropenia [Unknown]
